FAERS Safety Report 12931118 (Version 1)
Quarter: 2016Q4

REPORT INFORMATION
  Report Type: Spontaneous
  Country: US (occurrence: US)
  Receive Date: 20161110
  Receipt Date: 20161110
  Transmission Date: 20170207
  Serious: No
  Sender: FDA-Public Use
  Company Number: US-JAZZ-2016-US-017841

PATIENT
  Sex: Female

DRUGS (49)
  1. SUDAFED PE CONGESTION [Concomitant]
     Active Substance: PHENYLEPHRINE HYDROCHLORIDE
  2. REQUIP [Concomitant]
     Active Substance: ROPINIROLE HYDROCHLORIDE
  3. CHLORELLA [Concomitant]
  4. PYRIDOXINE [Concomitant]
     Active Substance: PYRIDOXINE
  5. VITAMIN B COMPLEX [Concomitant]
     Active Substance: CYANOCOBALAMIN\DEXPANTHENOL\NIACINAMIDE\PYRIDOXINE HYDROCHLORIDE\RIBOFLAVIN 5^-PHOSPHATE SODIUM\THIAMINE HYDROCHLORIDE\VITAMIN B COMPLEX
  6. ADDERALL [Concomitant]
     Active Substance: AMPHETAMINE ASPARTATE\AMPHETAMINE SULFATE\DEXTROAMPHETAMINE SACCHARATE\DEXTROAMPHETAMINE SULFATE
  7. ZINC GLUCONATE [Concomitant]
     Active Substance: ZINC GLUCONATE
  8. CHROMIUM PICOLINATE [Concomitant]
     Active Substance: CHROMIUM PICOLINATE
  9. EPIPEN [Concomitant]
     Active Substance: EPINEPHRINE
  10. VITAMIN C [Concomitant]
     Active Substance: ASCORBIC ACID
  11. VITAMIN D3 [Concomitant]
     Active Substance: CHOLECALCIFEROL
  12. VALTREX [Concomitant]
     Active Substance: VALACYCLOVIR HYDROCHLORIDE
  13. BIOTIN [Concomitant]
     Active Substance: BIOTIN
  14. CURCUMIN [Concomitant]
     Active Substance: CURCUMIN
  15. MACROBID [Concomitant]
     Active Substance: NITROFURANTOIN\NITROFURANTOIN MONOHYDRATE
  16. STRATTERA [Concomitant]
     Active Substance: ATOMOXETINE HYDROCHLORIDE
  17. XYREM [Suspect]
     Active Substance: SODIUM OXYBATE
     Indication: NARCOLEPSY
     Dosage: 2.25 G, BID
     Route: 048
     Dates: start: 201511, end: 201511
  18. XYREM [Suspect]
     Active Substance: SODIUM OXYBATE
     Dosage: DOSE ADJUSTMENSTS
     Route: 048
     Dates: start: 201511, end: 201511
  19. ZYRTEC [Concomitant]
     Active Substance: CETIRIZINE HYDROCHLORIDE
  20. BENADRYL ALLERGY [Concomitant]
     Active Substance: DIPHENHYDRAMINE HYDROCHLORIDE
  21. MULTIVITAMIN [Concomitant]
     Active Substance: VITAMINS
  22. VITAMIN B12 [Concomitant]
     Active Substance: CYANOCOBALAMIN
  23. KELP [Concomitant]
     Active Substance: KELP
  24. CALCIUM CITRATE + D [Concomitant]
  25. ALBUTEROL SULFATE. [Concomitant]
     Active Substance: ALBUTEROL SULFATE
  26. CALCIUM ANTACID [Concomitant]
     Active Substance: CALCIUM CARBONATE
  27. FISH OIL [Concomitant]
     Active Substance: FISH OIL
  28. FOLIC ACID. [Concomitant]
     Active Substance: FOLIC ACID
  29. L-ARGININE [Concomitant]
     Active Substance: ARGININE
  30. PATANASE [Concomitant]
     Active Substance: OLOPATADINE HYDROCHLORIDE
  31. SOMA [Concomitant]
     Active Substance: CARISOPRODOL
  32. AMBIEN [Concomitant]
     Active Substance: ZOLPIDEM TARTRATE
  33. MAGNESIUM OXIDE. [Concomitant]
     Active Substance: MAGNESIUM OXIDE
  34. NORCO [Concomitant]
     Active Substance: ACETAMINOPHEN\HYDROCODONE BITARTRATE
  35. SIMETHICONE (DIMETHICONE) [Concomitant]
     Active Substance: DIMETHICONE
  36. LOSARTAN POTASSIUM. [Concomitant]
     Active Substance: LOSARTAN POTASSIUM
  37. GLUCOSAMINE CHONDROITIN [Concomitant]
     Active Substance: CHONDROITIN SULFATE (BOVINE)\GLUCOSAMINE HYDROCHLORIDE
  38. GUAIFENESIN. [Concomitant]
     Active Substance: GUAIFENESIN
  39. NASACORT [Concomitant]
     Active Substance: TRIAMCINOLONE ACETONIDE
  40. TEA [Concomitant]
     Active Substance: TEA LEAF
  41. PREMPRO [Concomitant]
     Active Substance: ESTROGENS, CONJUGATED\MEDROXYPROGESTERONE ACETATE
  42. TIZANIDINE HCL [Concomitant]
     Active Substance: TIZANIDINE HYDROCHLORIDE
  43. YEAST [Concomitant]
     Active Substance: YEAST
  44. ALLEGRA ALLERGY [Concomitant]
     Active Substance: FEXOFENADINE HYDROCHLORIDE
  45. COLLAGEN HYDROLYSATE [Concomitant]
  46. XYREM [Suspect]
     Active Substance: SODIUM OXYBATE
     Dosage: 4.5 G, BID
     Route: 048
     Dates: start: 201511
  47. ALPRAZOLAM. [Concomitant]
     Active Substance: ALPRAZOLAM
  48. IBUPROFEN. [Concomitant]
     Active Substance: IBUPROFEN
  49. PROBIOTIC COMPLEX [Concomitant]

REACTIONS (4)
  - Alopecia [Unknown]
  - Anxiety [Not Recovered/Not Resolved]
  - Hypersensitivity [Not Recovered/Not Resolved]
  - Stress [Not Recovered/Not Resolved]
